FAERS Safety Report 7952477-2 (Version None)
Quarter: 2011Q4

REPORT INFORMATION
  Report Type: 
  Country: None (occurrence: None)
  Receive Date: 20111201
  Receipt Date: 20111117
  Transmission Date: 20120403
  Serious: Yes (Other)
  Sender: FDA-Public Use
  Company Number: US-WATSON-2011-19907

PATIENT
  Age: 24 Year
  Sex: Female

DRUGS (2)
  1. CYCLOPHOSPHAMIDE [Suspect]
     Indication: PRODUCT USED FOR UNKNOWN INDICATION
     Dosage: UNKNOWN
     Route: 065
  2. PREDNISOLONE [Suspect]
     Indication: PRODUCT USED FOR UNKNOWN INDICATION
     Dosage: 30 - 60 MG, DAILY
     Route: 065

REACTIONS (3)
  - SUBCUTANEOUS ABSCESS [None]
  - NOCARDIA TEST POSITIVE [None]
  - EYE INFECTION BACTERIAL [None]
